FAERS Safety Report 4421788-X (Version None)
Quarter: 2004Q3

REPORT INFORMATION
  Report Type: 
  Country: None (occurrence: None)
  Receive Date: 20040806
  Receipt Date: 20040726
  Transmission Date: 20050211
  Serious: Yes (Hospitalization)
  Sender: FDA-Public Use
  Company Number: ST-2004-007925

PATIENT
  Age: 29 Year
  Sex: Male
  Weight: 65 kg

DRUGS (3)
  1. OLMETEC [Suspect]
     Indication: HYPERTENSION
     Dosage: 20 MG QD PO
     Route: 048
     Dates: start: 20040526, end: 20040703
  2. MERISLON [Concomitant]
  3. NAUZELIN [Concomitant]

REACTIONS (7)
  - ALANINE AMINOTRANSFERASE INCREASED [None]
  - ASPARTATE AMINOTRANSFERASE INCREASED [None]
  - BLOOD LACTATE DEHYDROGENASE INCREASED [None]
  - CHILLS [None]
  - MALAISE [None]
  - PHAEOCHROMOCYTOMA [None]
  - RHABDOMYOLYSIS [None]
